FAERS Safety Report 8028266-X (Version None)
Quarter: 2012Q1

REPORT INFORMATION
  Report Type: 
  Country: None (occurrence: None)
  Receive Date: 20120106
  Receipt Date: 20120104
  Transmission Date: 20120608
  Serious: Yes (Congenital Anomaly)
  Sender: FDA-Public Use
  Company Number: HU-ROCHE-1026841

PATIENT

DRUGS (4)
  1. DIAZEPAM [Suspect]
     Indication: EPILEPSY
     Route: 064
  2. ETHOSUXIMIDE [Suspect]
     Indication: EPILEPSY
  3. PRIMIDONE [Suspect]
     Indication: EPILEPSY
     Route: 064
  4. CARBAMAZEPINE [Suspect]
     Indication: EPILEPSY
     Route: 064

REACTIONS (2)
  - MATERNAL EXPOSURE TIMING UNSPECIFIED [None]
  - CONGENITAL CARDIOVASCULAR ANOMALY [None]
